FAERS Safety Report 4766737-X (Version None)
Quarter: 2005Q3

REPORT INFORMATION
  Report Type: 
  Country: None (occurrence: None)
  Receive Date: 20050908
  Receipt Date: 20050829
  Transmission Date: 20060218
  Serious: Yes (Other)
  Sender: FDA-Public Use
  Company Number: 2005122015

PATIENT
  Age: 58 Year
  Sex: Female
  Weight: 68.0396 kg

DRUGS (6)
  1. CELEBREX [Suspect]
     Indication: RHEUMATOID ARTHRITIS
     Dosage: 100 MG (100 MG, 1 IN 1 D)
  2. ETANERCEPT (ETANERCEPT) [Suspect]
     Indication: ILL-DEFINED DISORDER
     Dates: start: 20040501
  3. ANTIVIRALS FOR SYSTEMIC USE (ANTIVIRALS FOR SYSTEMIC USE) [Suspect]
     Indication: VIRAL INFECTION
     Dates: start: 20050101, end: 20050101
  4. ALL OTHER THERAPEUTIC PRODUCTS (ALL OTHER THERAPEUTIC PRODUCTS) [Suspect]
     Indication: VIRAL INFECTION
     Dates: start: 20050101, end: 20050101
  5. PERCOCET [Concomitant]
  6. PREDNISONE [Concomitant]

REACTIONS (5)
  - APPENDICITIS [None]
  - DRUG INEFFECTIVE [None]
  - SUDDEN HEARING LOSS [None]
  - TINNITUS [None]
  - VIRAL INFECTION [None]
